FAERS Safety Report 4788829-1 (Version None)
Quarter: 2005Q4

REPORT INFORMATION
  Report Type: 
  Country: None (occurrence: None)
  Receive Date: 20051004
  Receipt Date: 20050924
  Transmission Date: 20060501
  Serious: Yes (Death)
  Sender: FDA-Public Use
  Company Number: GXKR2005DE01696

PATIENT
  Age: 76 Year
  Sex: Male
  Weight: 77 kg

DRUGS (3)
  1. MIRTAZAPINE [Suspect]
     Indication: INCORRECT DOSE ADMINISTERED
     Dosage: ORAL
     Route: 048
  2. AMITRIPTYLINE HCL [Suspect]
  3. ZOLOFT [Suspect]
     Indication: INCORRECT DOSE ADMINISTERED

REACTIONS (5)
  - COMPLETED SUICIDE [None]
  - INTENTIONAL DRUG MISUSE [None]
  - OVERDOSE [None]
  - PULMONARY CONGESTION [None]
  - PULMONARY OEDEMA [None]
